FAERS Safety Report 9929123 (Version 1)
Quarter: 2014Q1

REPORT INFORMATION
  Report Type: Spontaneous
  Country: AU (occurrence: None)
  Receive Date: 20140225
  Receipt Date: 20140225
  Transmission Date: 20141002
  Serious: Yes (Other)
  Sender: FDA-Public Use
  Company Number: 2013000548

PATIENT
  Age: 53 Year
  Sex: Female
  Weight: 75 kg

DRUGS (4)
  1. ACEON [Suspect]
     Indication: PRODUCT USED FOR UNKNOWN INDICATION
     Route: 048
  2. NATURAL NUTR. WOMEN. MEGA POT. M. VIT. W. SE ( HERBAL NOS, MINERALS NOS, VITAMINS NOS) [Concomitant]
  3. ACETYLSALICYLIC ACID ( ACETYLSALICYLIC ACID) [Concomitant]
  4. ATENOLOL ( ATENOLOL) [Concomitant]

REACTIONS (1)
  - Angioedema [None]
